FAERS Safety Report 9894504 (Version 1)
Quarter: 2014Q1

REPORT INFORMATION
  Report Type: Spontaneous
  Country: GB (occurrence: GB)
  Receive Date: 20140213
  Receipt Date: 20140213
  Transmission Date: 20141002
  Serious: Yes (Disabling)
  Sender: FDA-Public Use
  Company Number: GB-TEVA-461455ISR

PATIENT
  Age: 21 Year
  Sex: Female
  Weight: 53.06 kg

DRUGS (2)
  1. HYDROCORTISONE [Suspect]
     Indication: RASH
     Dosage: SPORADIC FOR PROBLEM AREAS
     Route: 061
     Dates: start: 20130410, end: 20131031
  2. EUMOVATE [Suspect]
     Indication: RASH
     Dosage: SPORADIC.
     Route: 061
     Dates: start: 20130410, end: 20131031

REACTIONS (6)
  - Erythema [Recovered/Resolved with Sequelae]
  - Oedema [Not Recovered/Not Resolved]
  - Wound secretion [Not Recovered/Not Resolved]
  - Conjunctivitis bacterial [Recovered/Resolved]
  - Fatigue [Not Recovered/Not Resolved]
  - Steroid withdrawal syndrome [Unknown]
